FAERS Safety Report 8113308-3 (Version None)
Quarter: 2012Q1

REPORT INFORMATION
  Report Type: 
  Country: None (occurrence: None)
  Receive Date: 20120203
  Receipt Date: 20120126
  Transmission Date: 20120608
  Serious: Yes (Other)
  Sender: FDA-Public Use
  Company Number: PHEH2011US010312

PATIENT
  Sex: Female

DRUGS (1)
  1. AREDIA [Suspect]
     Indication: NEOPLASM MALIGNANT

REACTIONS (1)
  - HAEMANGIOMA [None]
